FAERS Safety Report 8718865 (Version 1)
Quarter: 2012Q4

REPORT INFORMATION
  Report Type: Report from Study
  Country: JP (occurrence: JP)
  Receive Date: 20120906
  Receipt Date: 20120906
  Transmission Date: 20130627
  Serious: Yes (Death)
  Sender: FDA-Public Use
  Company Number: PHHY2008JP27387

PATIENT
  Age: 67 None
  Sex: Female
  Weight: 43 kg

DRUGS (8)
  1. EXJADE [Suspect]
     Indication: IRON OVERLOAD
     Dosage: 500 mg, daily
     Route: 048
     Dates: start: 20080923, end: 20080929
  2. EXJADE [Suspect]
     Indication: MYELODYSPLASTIC SYNDROME
  3. SEVELAMER HYDROCHLORIDE [Concomitant]
     Dosage: 3.5 g, UNK
     Route: 048
  4. MARZULENE S [Concomitant]
     Dosage: 1 g, UNK
     Route: 048
  5. LENDORMIN [Concomitant]
     Dosage: 0.25 mg, UNK
     Route: 048
  6. NORVASC [Concomitant]
     Dosage: 10 mg, UNK
     Route: 048
  7. DIOVAN [Concomitant]
     Dosage: 80 mg, UNK
     Route: 048
     Dates: start: 20080401
  8. DRUG THERAPY NOS [Concomitant]
     Dosage: 25 mg, UNK
     Route: 048
     Dates: start: 20080909, end: 20081027

REACTIONS (8)
  - Infection [Fatal]
  - Cholecystitis [Fatal]
  - Ileus [Fatal]
  - Sepsis [Fatal]
  - Disease progression [Fatal]
  - Nausea [Unknown]
  - Diarrhoea [Unknown]
  - Myelodysplastic syndrome [None]
